FAERS Safety Report 7190675-9 (Version None)
Quarter: 2010Q4

REPORT INFORMATION
  Report Type: 
  Country: None (occurrence: None)
  Receive Date: 20101223
  Receipt Date: 20101220
  Transmission Date: 20110411
  Serious: Yes (Other)
  Sender: FDA-Public Use
  Company Number: US-PFIZER INC-2010176071

PATIENT
  Sex: Female

DRUGS (1)
  1. CALAN [Suspect]
     Indication: SUPRAVENTRICULAR TACHYCARDIA
     Dosage: 120 MG, DAILY
     Route: 048

REACTIONS (1)
  - HYPOTHYROIDISM [None]
